FAERS Safety Report 9653901 (Version 2)
Quarter: 2014Q2

REPORT INFORMATION
  Report Type: Spontaneous
  Country: US (occurrence: US)
  Receive Date: 20131029
  Receipt Date: 20140423
  Transmission Date: 20141212
  Serious: No
  Sender: FDA-Public Use
  Company Number: US-BIOGENIDEC-2013BI081706

PATIENT
  Age: 57 Year
  Sex: Female

DRUGS (6)
  1. TECFIDERA [Suspect]
     Indication: MULTIPLE SCLEROSIS
     Route: 048
     Dates: start: 20130529
  2. MIRAPEX [Concomitant]
  3. VIT C [Concomitant]
  4. OCYCODONE [Concomitant]
  5. VIT D [Concomitant]
  6. FUROSEMIDE [Concomitant]
     Route: 048

REACTIONS (2)
  - Wound secretion [Unknown]
  - Tooth loss [Not Recovered/Not Resolved]
